FAERS Safety Report 17021713 (Version 1)
Quarter: 2019Q4

REPORT INFORMATION
  Report Type: Spontaneous
  Country: US (occurrence: US)
  Receive Date: 20191111
  Receipt Date: 20191111
  Transmission Date: 20200122
  Serious: No
  Sender: FDA-Public Use
  Company Number: None

PATIENT
  Age: 51 Year
  Sex: Female
  Weight: 58.5 kg

DRUGS (1)
  1. BOTOX [Suspect]
     Active Substance: ONABOTULINUMTOXINA
     Indication: SKIN COSMETIC PROCEDURE
     Dosage: ?          OTHER STRENGTH:UNITS;OTHER FREQUENCY:ONE TIME;?
     Route: 058

REACTIONS (16)
  - Sinusitis [None]
  - Vein discolouration [None]
  - Pain in extremity [None]
  - Ear pain [None]
  - Vascular pain [None]
  - Nausea [None]
  - Vertigo [None]
  - Dizziness [None]
  - Ear congestion [None]
  - Pain in jaw [None]
  - Ocular discomfort [None]
  - Neck pain [None]
  - Muscular weakness [None]
  - Dysphagia [None]
  - Headache [None]
  - Paraesthesia [None]

NARRATIVE: CASE EVENT DATE: 20190726
